FAERS Safety Report 4438942-3 (Version None)
Quarter: 2004Q3

REPORT INFORMATION
  Report Type: 
  Country: None (occurrence: None)
  Receive Date: 20040830
  Receipt Date: 20040817
  Transmission Date: 20050211
  Serious: Yes (Hospitalization)
  Sender: FDA-Public Use
  Company Number: 2004AP04321

PATIENT
  Age: 68 Year
  Sex: Male

DRUGS (6)
  1. IRESSA [Suspect]
     Indication: NON-SMALL CELL LUNG CANCER
     Dosage: 250 MG DAILY PO
     Route: 048
     Dates: start: 20040609, end: 20040810
  2. LOXONIN [Concomitant]
  3. SELBEX [Concomitant]
  4. CYANOCOBALAMIN [Concomitant]
  5. CARBOPLATIN [Concomitant]
  6. DOCETAXEL [Concomitant]

REACTIONS (3)
  - CYSTITIS [None]
  - HAEMATURIA [None]
  - RENAL HAEMORRHAGE [None]
